FAERS Safety Report 11857650 (Version 1)
Quarter: 2015Q4

REPORT INFORMATION
  Report Type: Spontaneous
  Country: IL (occurrence: None)
  Receive Date: 20151221
  Receipt Date: 20151221
  Transmission Date: 20160305
  Serious: Yes (Hospitalization)
  Sender: FDA-Public Use
  Company Number: None

PATIENT
  Sex: Female
  Weight: 76.7 kg

DRUGS (5)
  1. VIEKIRAX [Suspect]
     Active Substance: OMBITASVIR\PARITAPREVIR\RITONAVIR
     Indication: HEPATITIS C
     Dosage: 2 PILLS EVERY DAY QD
     Dates: start: 20151112
  2. ATENOLOL. [Concomitant]
     Active Substance: ATENOLOL
  3. RIBAVIRIN 200MG [Suspect]
     Active Substance: RIBAVIRIN
     Indication: HEPATITIS C
     Dosage: 3 PILL (6 PILLS TOTAL PER DAY)
     Dates: start: 20151112, end: 20151125
  4. ENALADEX [Concomitant]
     Active Substance: ENALAPRIL MALEATE
  5. EXVIERA DSV 250MG ABBVIE [Suspect]
     Active Substance: DASABUVIR SODIUM MONOHYDRATE
     Indication: HEPATITIS C
     Dosage: 1 PILL EVERY DAY BID
     Dates: start: 20151112

REACTIONS (1)
  - Anaemia [None]

NARRATIVE: CASE EVENT DATE: 20151125
